FAERS Safety Report 6680160-2 (Version None)
Quarter: 2010Q2

REPORT INFORMATION
  Report Type: 
  Country: None (occurrence: None)
  Receive Date: 20100413
  Receipt Date: 20100406
  Transmission Date: 20101027
  Serious: Yes (Death)
  Sender: FDA-Public Use
  Company Number: SK-ROCHE-694658

PATIENT
  Sex: Male

DRUGS (4)
  1. BEVACIZUMAB [Suspect]
     Indication: COLON CANCER
     Route: 065
     Dates: start: 20100104, end: 20100104
  2. XELODA [Concomitant]
     Indication: COLON CANCER
     Dosage: DOSE: 3-0-3
     Route: 048
     Dates: start: 20100105, end: 20100118
  3. PREDNISOLONE [Concomitant]
     Dosage: DOSE: 1-0-0
     Route: 048
     Dates: start: 20091102, end: 20100120
  4. HELICID [Concomitant]
     Dosage: DOSE: 0-0-1
     Route: 048
     Dates: start: 20091102, end: 20100120

REACTIONS (1)
  - ISCHAEMIC STROKE [None]
